FAERS Safety Report 16772071 (Version 2)
Quarter: 2019Q4

REPORT INFORMATION
  Report Type: Spontaneous
  Country: JP (occurrence: JP)
  Receive Date: 20190904
  Receipt Date: 20191015
  Transmission Date: 20200122
  Serious: Yes (Other)
  Sender: FDA-Public Use
  Company Number: JP-BAYER-2019-161474

PATIENT
  Age: 9 Decade
  Sex: Female

DRUGS (1)
  1. STIVARGA [Suspect]
     Active Substance: REGORAFENIB
     Indication: COLORECTAL CANCER
     Dosage: 80 MG, QD
     Route: 048
     Dates: start: 20190819, end: 20190902

REACTIONS (2)
  - Colorectal cancer [Not Recovered/Not Resolved]
  - Malaise [Recovering/Resolving]

NARRATIVE: CASE EVENT DATE: 20190902
